FAERS Safety Report 5060751-5 (Version None)
Quarter: 2006Q3

REPORT INFORMATION
  Report Type: 
  Country: None (occurrence: None)
  Receive Date: 20060721
  Receipt Date: 20060721
  Transmission Date: 20061208
  Serious: Yes (Hospitalization)
  Sender: FDA-Public Use
  Company Number: None

PATIENT
  Age: 80 Year
  Sex: Male
  Weight: 100 kg

DRUGS (10)
  1. SCOPOLAMINE OPHTH SOLUTION   0.25 % [Suspect]
     Indication: POSTOPERATIVE CARE
     Dosage: 1 DROP  FOUR TIMES A DAY  OPHTHALMIC
     Route: 047
     Dates: start: 20060208, end: 20060218
  2. SCOPOLAMINE OPHTH SOLUTION   0.25 % [Suspect]
     Indication: VITRECTOMY
     Dosage: 1 DROP  FOUR TIMES A DAY  OPHTHALMIC
     Route: 047
     Dates: start: 20060208, end: 20060218
  3. MOXIFLOXACIN HCL [Concomitant]
  4. URSODIOL [Concomitant]
  5. AZITHROMYCIN [Concomitant]
  6. CEFTRIAXONE [Concomitant]
  7. HALOPERIDOL [Concomitant]
  8. LEVOFLOXACIN [Concomitant]
  9. ACYCLOVIR [Concomitant]
  10. FOSPHENYTOIN SODIUM [Concomitant]

REACTIONS (12)
  - AGITATION [None]
  - ASPIRATION [None]
  - CEREBROVASCULAR ACCIDENT [None]
  - CONFUSIONAL STATE [None]
  - CONVULSION [None]
  - ENCEPHALOPATHY [None]
  - FALL [None]
  - INFECTION [None]
  - MENINGITIS VIRAL [None]
  - MENTAL STATUS CHANGES [None]
  - PNEUMONIA [None]
  - RIB FRACTURE [None]
